FAERS Safety Report 8813552 (Version 1)
Quarter: 2012Q4

REPORT INFORMATION
  Report Type: 
  Country: US (occurrence: US)
  Receive Date: 20120927
  Receipt Date: 20120927
  Transmission Date: 20130627
  Serious: No
  Sender: FDA-Public Use
  Company Number: US-AMGEN-USASP2012051308

PATIENT
  Age: 51 Year
  Sex: Female
  Weight: 96.6 kg

DRUGS (17)
  1. PROLIA [Suspect]
     Indication: BONE LOSS
     Dosage: 60 mg, q6mo
     Route: 058
     Dates: start: 20120802
  2. MAGNESIUM [Concomitant]
     Dosage: 2 mg, qd
  3. TRAMADOL [Concomitant]
     Dosage: 1 mg, qd
  4. TRAMADOL [Concomitant]
  5. PANTOPRAZOLE [Concomitant]
     Dosage: 1 mg, qd
  6. VITAMIN E [Concomitant]
     Dosage: 2 mg, qd
  7. ALDACTONE [Concomitant]
     Dosage: 2 mg, qd
  8. CIPRO [Concomitant]
     Dosage: 1 mg, qwk
  9. GABAPENTIN [Concomitant]
     Dosage: 3 mg, qd
  10. CELEXA [Concomitant]
     Dosage: 1 mg, qd
  11. LASIX [Concomitant]
     Dosage: 1 mg, qd
  12. ENULOSE [Concomitant]
     Dosage: 2 ml, qd
  13. AP CALCIUM+VIT D [Concomitant]
     Dosage: UNK UNK, qd
  14. MULTIVITAMIN [Concomitant]
     Dosage: UNK
  15. AROMASIN [Concomitant]
     Dosage: UNK
  16. ANTINEOPLASTIC AGENTS [Concomitant]
     Dosage: UNK
     Dates: start: 20101029
  17. EXEMESTANE [Concomitant]
     Indication: BREAST CANCER
     Dosage: 25 mg, qd
     Route: 048
     Dates: start: 200908, end: 201006

REACTIONS (1)
  - Back pain [Recovered/Resolved]
